FAERS Safety Report 18511271 (Version 1)
Quarter: 2020Q4

REPORT INFORMATION
  Report Type: Spontaneous
  Country: CA (occurrence: CA)
  Receive Date: 20201117
  Receipt Date: 20201117
  Transmission Date: 20210114
  Serious: Yes (Death, Other)
  Sender: FDA-Public Use
  Company Number: CA-JNJFOC-A-NJ2019-198241

PATIENT
  Age: 64 Year
  Sex: Female

DRUGS (12)
  1. POTASSIUM [Concomitant]
     Active Substance: POTASSIUM
  2. ASCORBIC ACID. [Concomitant]
     Active Substance: ASCORBIC ACID
  3. FUROSEMIDE. [Concomitant]
     Active Substance: FUROSEMIDE
  4. POLYSACCHARIDE IRON [Concomitant]
  5. SYNTHROID [Concomitant]
     Active Substance: LEVOTHYROXINE SODIUM
  6. REVATIO [Concomitant]
     Active Substance: SILDENAFIL CITRATE
  7. SALBUTAMOL [Concomitant]
     Active Substance: ALBUTEROL
  8. TRACLEER [Suspect]
     Active Substance: BOSENTAN
     Indication: PULMONARY ARTERIAL HYPERTENSION
     Dosage: 125 MG, QD
     Route: 048
     Dates: start: 20190930
  9. TRACLEER [Suspect]
     Active Substance: BOSENTAN
     Route: 048
  10. IRON [Concomitant]
     Active Substance: IRON
  11. ASA [Concomitant]
     Active Substance: ASPIRIN
  12. VIT D [Concomitant]
     Active Substance: VITAMIN D NOS

REACTIONS (2)
  - Death [Fatal]
  - Renal disorder [Unknown]
